FAERS Safety Report 4286666-8 (Version None)
Quarter: 2004Q1

REPORT INFORMATION
  Report Type: 
  Country: None (occurrence: None)
  Receive Date: 20040204
  Receipt Date: 20040127
  Transmission Date: 20041129
  Serious: Yes (Hospitalization)
  Sender: FDA-Public Use
  Company Number: HQWYE577027JAN04

PATIENT
  Age: 39 Year
  Sex: Female

DRUGS (1)
  1. NEOVLAR (LEVNORGESTREL/ETHINYL ESTRADIOL, TABLET) [Suspect]
     Indication: ORAL CONTRACEPTION
     Dosage: 1 TABLET DAILY, ORAL
     Route: 048
     Dates: start: 19920101, end: 20040101

REACTIONS (7)
  - BLOOD PRESSURE INCREASED [None]
  - BREAST DISCHARGE [None]
  - CEREBRAL ISCHAEMIA [None]
  - COMA [None]
  - INTRACRANIAL ANEURYSM [None]
  - MEDICATION ERROR [None]
  - OLIGOMENORRHOEA [None]
